FAERS Safety Report 5595623-0 (Version None)
Quarter: 2008Q1

REPORT INFORMATION
  Report Type: 
  Country: None (occurrence: None)
  Receive Date: 20080116
  Receipt Date: 20080116
  Transmission Date: 20080703
  Serious: Yes (Other)
  Sender: FDA-Public Use
  Company Number: None

PATIENT
  Sex: Female
  Weight: 55.4 kg

DRUGS (4)
  1. CEFAZOLIN [Suspect]
     Indication: POSTOPERATIVE CARE
     Dosage: 1GM  ONCE  IV
     Route: 042
     Dates: start: 20071219, end: 20071219
  2. CEFAZOLIN [Suspect]
     Indication: PREOPERATIVE CARE
     Dosage: 1GM  ONCE  IV
     Route: 042
     Dates: start: 20071219, end: 20071219
  3. CEFAZOLIN [Suspect]
     Indication: PROPHYLAXIS
     Dosage: 1GM  ONCE  IV
     Route: 042
     Dates: start: 20071219, end: 20071219
  4. CEFADROXIL [Suspect]
     Indication: PROPHYLAXIS
     Dosage: PO
     Route: 048

REACTIONS (1)
  - LIVER FUNCTION TEST ABNORMAL [None]
